FAERS Safety Report 5825461-2 (Version None)
Quarter: 2008Q3

REPORT INFORMATION
  Report Type: 
  Country: None (occurrence: None)
  Receive Date: 20080725
  Receipt Date: 20080725
  Transmission Date: 20090109
  Serious: Yes (Hospitalization)
  Sender: FDA-Public Use
  Company Number: None

PATIENT
  Age: 40 Year
  Sex: Male

DRUGS (2)
  1. LANTUS [Suspect]
     Dosage: COMPLIANCE VARIES
     Dates: start: 20080606, end: 20080722
  2. AVANDAMET [Suspect]
     Dosage: COMPLIANCE VARIES
     Dates: start: 20070606, end: 20080722

REACTIONS (2)
  - ANGIOEDEMA [None]
  - DRUG INTERACTION [None]
